FAERS Safety Report 4545744-6 (Version None)
Quarter: 2005Q1

REPORT INFORMATION
  Report Type: 
  Country: None (occurrence: None)
  Receive Date: 20050103
  Receipt Date: 20041210
  Transmission Date: 20050727
  Serious: Yes (Hospitalization)
  Sender: FDA-Public Use
  Company Number: USA041285850

PATIENT
  Age: 56 Year
  Sex: Female
  Weight: 93 kg

DRUGS (2)
  1. HUMULIN N [Suspect]
     Dosage: 90 U DAY
     Dates: start: 19800101
  2. HUMULIN R [Suspect]
     Dates: start: 19800101

REACTIONS (2)
  - NASOPHARYNGITIS [None]
  - PNEUMONIA [None]
